FAERS Safety Report 16527445 (Version 1)
Quarter: 2019Q3

REPORT INFORMATION
  Report Type: Spontaneous
  Country: FR (occurrence: FR)
  Receive Date: 20190704
  Receipt Date: 20190704
  Transmission Date: 20191004
  Serious: Yes (Other)
  Sender: FDA-Public Use
  Company Number: FR-009507513-1907FRA000314

PATIENT
  Age: 74 Year
  Sex: Female

DRUGS (1)
  1. PEMBROLIZUMAB. [Suspect]
     Active Substance: PEMBROLIZUMAB
     Indication: MALIGNANT MELANOMA STAGE IV
     Dosage: 2 MILLIGRAM/KILOGRAM, Q3W

REACTIONS (2)
  - Immune-mediated adverse reaction [Recovered/Resolved]
  - Morphoea [Recovered/Resolved]
